FAERS Safety Report 11787534 (Version 1)
Quarter: 2015Q4

REPORT INFORMATION
  Report Type: Spontaneous
  Country: US (occurrence: US)
  Receive Date: 20151130
  Receipt Date: 20151130
  Transmission Date: 20160305
  Serious: Yes (Other)
  Sender: FDA-Public Use
  Company Number: US-BAYER-2015-472615

PATIENT
  Age: 80 Year
  Sex: Female
  Weight: 72.56 kg

DRUGS (6)
  1. METFORMIN [Concomitant]
     Active Substance: METFORMIN HYDROCHLORIDE
  2. PLAVIX [Concomitant]
     Active Substance: CLOPIDOGREL BISULFATE
  3. BAYER LOW DOSE [Suspect]
     Active Substance: ASPIRIN
     Indication: PALPITATIONS
     Dosage: 1 DF, PRN
     Dates: start: 2012
  4. BAYER LOW DOSE [Suspect]
     Active Substance: ASPIRIN
     Indication: PALPITATIONS
     Dosage: 1 DF, QD
     Route: 048
     Dates: end: 2012
  5. GLUCOSE [Concomitant]
     Active Substance: DEXTROSE
  6. VALIUM [Concomitant]
     Active Substance: DIAZEPAM

REACTIONS (2)
  - Product use issue [None]
  - Haemorrhage subcutaneous [None]

NARRATIVE: CASE EVENT DATE: 2012
